FAERS Safety Report 5694465-5 (Version None)
Quarter: 2008Q2

REPORT INFORMATION
  Report Type: 
  Country: None (occurrence: None)
  Receive Date: 20080404
  Receipt Date: 20080326
  Transmission Date: 20081010
  Serious: Yes (Other)
  Sender: FDA-Public Use
  Company Number: PHHY2008JP03038

PATIENT
  Age: 72 Year
  Sex: Female

DRUGS (10)
  1. TEGRETOL [Suspect]
     Indication: CEREBRAL INFARCTION
     Dosage: 200 MG/DAY
     Route: 048
  2. DIOVAN [Suspect]
     Indication: CEREBRAL INFARCTION
     Dosage: 40 MG/DAY
     Route: 048
  3. NORVASC [Concomitant]
     Dosage: 5 MG, UNK
     Route: 048
  4. ASPIRIN [Concomitant]
     Dosage: 100 MG, UNK
     Route: 048
  5. NITOROL [Concomitant]
     Dosage: 20 MG, UNK
     Route: 048
  6. LASIX [Concomitant]
     Dosage: 10 MG, UNK
     Route: 048
  7. PANALDINE [Concomitant]
     Dosage: 20 MG, UNK
     Route: 048
  8. EVISTA [Concomitant]
     Dosage: 60 MG, UNK
     Route: 048
  9. BIOFERMIN [Concomitant]
     Route: 048
  10. UNSPECIFIED [Concomitant]
     Dosage: 330 MG, UNK

REACTIONS (6)
  - ABDOMINAL PAIN [None]
  - ALANINE AMINOTRANSFERASE INCREASED [None]
  - ASPARTATE AMINOTRANSFERASE INCREASED [None]
  - CHOLELITHIASIS [None]
  - ECHOGRAPHY ABNORMAL [None]
  - LIVER FUNCTION TEST ABNORMAL [None]
